FAERS Safety Report 14180252 (Version 1)
Quarter: 2017Q4

REPORT INFORMATION
  Report Type: Spontaneous
  Country: US (occurrence: US)
  Receive Date: 20171110
  Receipt Date: 20171110
  Transmission Date: 20180321
  Serious: No
  Sender: FDA-Public Use
  Company Number: US-OTSUKA-2017_001569

PATIENT
  Age: 60 Year
  Sex: Male

DRUGS (1)
  1. NUEDEXTA [Suspect]
     Active Substance: DEXTROMETHORPHAN HYDROBROMIDE\QUINIDINE SULFATE
     Indication: AFFECT LABILITY
     Dosage: UNK, BID
     Route: 048
     Dates: start: 201512, end: 201701

REACTIONS (10)
  - Haemorrhage [Unknown]
  - Off label use [Unknown]
  - Loss of consciousness [Unknown]
  - Gait disturbance [Unknown]
  - Rash [Not Recovered/Not Resolved]
  - Withdrawal syndrome [Unknown]
  - Scab [Not Recovered/Not Resolved]
  - Fall [Unknown]
  - Contusion [Not Recovered/Not Resolved]
  - Therapy cessation [Unknown]

NARRATIVE: CASE EVENT DATE: 201512
